FAERS Safety Report 8842021 (Version 2)
Quarter: 2012Q4

REPORT INFORMATION
  Report Type: 
  Country: BR (occurrence: BR)
  Receive Date: 20121016
  Receipt Date: 20121023
  Transmission Date: 20130627
  Serious: Yes (Other)
  Sender: FDA-Public Use
  Company Number: BR-JNJFOC-20121006052

PATIENT
  Sex: Female
  Weight: 29 kg

DRUGS (4)
  1. TYLENOL [Suspect]
     Indication: ARTHRALGIA
     Dosage: half of the caplet each time of use
     Route: 048
     Dates: start: 201207, end: 201209
  2. TYLENOL [Suspect]
     Indication: ARTHRALGIA
     Dosage: half of the caplet each time of use
     Route: 048
     Dates: start: 201207, end: 201209
  3. LEXOTAN [Concomitant]
     Route: 065
     Dates: start: 1994
  4. OMEPRAZOLE [Concomitant]
     Indication: GASTROOESOPHAGEAL REFLUX DISEASE
     Route: 065

REACTIONS (4)
  - Cholelithiasis [Recovered/Resolved]
  - Flatulence [Recovered/Resolved]
  - Eructation [Recovered/Resolved]
  - Diarrhoea [Recovered/Resolved]
